FAERS Safety Report 6655337-2 (Version None)
Quarter: 2010Q1

REPORT INFORMATION
  Report Type: 
  Country: None (occurrence: None)
  Receive Date: 20100329
  Receipt Date: 20100317
  Transmission Date: 20100710
  Serious: Yes (Other)
  Sender: FDA-Public Use
  Company Number: PHHY2010FR10705

PATIENT
  Sex: Male

DRUGS (5)
  1. CLOZAPINE [Suspect]
     Dosage: 300 MG, QD
     Dates: start: 20100202, end: 20100222
  2. CLOZAPINE [Suspect]
     Dosage: 300 MG, UNK
  3. TEGRETOL [Concomitant]
     Dosage: 400 MG/L, UNK
     Dates: start: 20090101
  4. RIVOTRIL [Concomitant]
     Dosage: 3 MG, QD
     Dates: start: 20080101
  5. THERALENE [Concomitant]
     Dosage: 30 MG, QD
     Dates: start: 20080101

REACTIONS (2)
  - BACTERIAL INFECTION [None]
  - THROMBOCYTOPENIA [None]
